FAERS Safety Report 5753676-0 (Version None)
Quarter: 2008Q2

REPORT INFORMATION
  Report Type: 
  Country: None (occurrence: None)
  Receive Date: 20080527
  Receipt Date: 20080527
  Transmission Date: 20081010
  Serious: Yes (Hospitalization)
  Sender: FDA-Public Use
  Company Number: None

PATIENT
  Sex: Female
  Weight: 70.85 kg

DRUGS (2)
  1. ONDANSETRON [Suspect]
     Dosage: 8MG IVP FOLLOWING CHEMO
     Route: 042
     Dates: start: 20060828
  2. DEXAMETHASONE TAB [Suspect]
     Dosage: 8MG PO QD FOR 3 DAYS PRIOR TO STEM CELL INFUSION
     Route: 048
     Dates: end: 20060831

REACTIONS (1)
  - RENAL FAILURE [None]
